FAERS Safety Report 4349056-5 (Version None)
Quarter: 2004Q2

REPORT INFORMATION
  Report Type: 
  Country: None (occurrence: None)
  Receive Date: 20040427
  Receipt Date: 20040427
  Transmission Date: 20050107
  Serious: No
  Sender: FDA-Public Use
  Company Number: None

PATIENT
  Sex: Female
  Weight: 68 kg

DRUGS (1)
  1. FLUOROURACIL [Suspect]
     Indication: PANCREATIC CARCINOMA
     Dosage: 330 MG/DAY IV CONTINUOUS (200 MG/M2)
     Route: 042
     Dates: start: 20040331, end: 20040419

REACTIONS (1)
  - MUCOSAL INFLAMMATION [None]
